FAERS Safety Report 6794529-9 (Version None)
Quarter: 2010Q2

REPORT INFORMATION
  Report Type: 
  Country: None (occurrence: None)
  Receive Date: 20100625
  Receipt Date: 20100106
  Transmission Date: 20101027
  Serious: No
  Sender: FDA-Public Use
  Company Number: A0838342A

PATIENT
  Sex: Female

DRUGS (1)
  1. VENTOLIN [Suspect]
     Indication: DRUG USE FOR UNKNOWN INDICATION
     Route: 065

REACTIONS (1)
  - ABDOMINAL DISCOMFORT [None]
